FAERS Safety Report 18677604 (Version 3)
Quarter: 2021Q1

REPORT INFORMATION
  Report Type: Report from Study
  Country: IL (occurrence: IL)
  Receive Date: 20201229
  Receipt Date: 20210203
  Transmission Date: 20210419
  Serious: Yes (Life-Threatening, Other)
  Sender: FDA-Public Use
  Company Number: IL-TAKEDA-2020TUS061019

PATIENT
  Age: 75 Year
  Sex: Female

DRUGS (1)
  1. VEDOLIZUMAB [Suspect]
     Active Substance: VEDOLIZUMAB
     Indication: COLITIS ULCERATIVE
     Dosage: 300 MILLIGRAM
     Route: 042
     Dates: start: 20180601

REACTIONS (1)
  - Acute cardiac event [Recovered/Resolved]

NARRATIVE: CASE EVENT DATE: 201806
